FAERS Safety Report 9871049 (Version 2)
Quarter: 2014Q1

REPORT INFORMATION
  Report Type: Spontaneous
  Country: US (occurrence: US)
  Receive Date: 20140205
  Receipt Date: 20140314
  Transmission Date: 20141002
  Serious: Yes (Hospitalization)
  Sender: FDA-Public Use
  Company Number: US-JNJFOC-20140117871

PATIENT
  Age: 45 Year
  Sex: Male

DRUGS (8)
  1. REMICADE [Suspect]
     Indication: COLITIS ULCERATIVE
     Route: 042
     Dates: start: 20140106, end: 20140106
  2. REMICADE [Suspect]
     Indication: COLITIS ULCERATIVE
     Route: 042
     Dates: start: 2002, end: 2004
  3. PREDNISONE [Concomitant]
     Indication: ARTHRITIS
     Dosage: TAPER FROM 40MG
     Route: 065
     Dates: start: 20140114
  4. PENTASA [Concomitant]
     Indication: COLITIS ULCERATIVE
     Route: 065
  5. 6MP [Concomitant]
     Indication: COLITIS ULCERATIVE
     Route: 065
  6. LOVENOX [Concomitant]
     Indication: DEEP VEIN THROMBOSIS
     Route: 065
     Dates: start: 20140114
  7. LOVENOX [Concomitant]
     Indication: PULMONARY EMBOLISM
     Route: 065
     Dates: start: 20140114
  8. VITAMIN D3 [Concomitant]
     Route: 065

REACTIONS (10)
  - Polyarthritis [Recovering/Resolving]
  - Aneurysm [Unknown]
  - Syncope [Unknown]
  - Cardiolipin antibody [Unknown]
  - Deep vein thrombosis [Unknown]
  - Infusion related reaction [Recovered/Resolved]
  - Pyrexia [Recovered/Resolved]
  - Pulmonary embolism [Recovering/Resolving]
  - Colitis ulcerative [Unknown]
  - Drug intolerance [Unknown]
